FAERS Safety Report 5398159-5 (Version None)
Quarter: 2007Q3

REPORT INFORMATION
  Report Type: 
  Country: None (occurrence: None)
  Receive Date: 20070726
  Receipt Date: 20070711
  Transmission Date: 20080115
  Serious: Yes (Hospitalization)
  Sender: FDA-Public Use
  Company Number: US-SHR-US-2007-018706

PATIENT
  Age: 65 Year
  Sex: Female
  Weight: 48.073 kg

DRUGS (15)
  1. BETASERON [Suspect]
     Indication: SECONDARY PROGRESSIVE MULTIPLE SCLEROSIS
     Dosage: 8 MIU, EVERY 2D
     Route: 058
     Dates: start: 20070221, end: 20070430
  2. BETASERON [Suspect]
     Dosage: 4 MIU, UNK
     Route: 058
     Dates: start: 20070605
  3. SERTRALINE [Concomitant]
     Dosage: 50 MG, UNK
  4. STOOL SOFTENER [Concomitant]
  5. ASPIRIN [Concomitant]
     Dosage: 81 MG, UNK
  6. IBUPROFEN [Concomitant]
  7. LISINOPRIL [Concomitant]
     Dosage: 5 MG, UNK
  8. KLOR-CON [Concomitant]
  9. HYDROCHLOROTHIAZIDE [Concomitant]
     Dosage: 12.5 MG, 2X/DAY
  10. BACLOFEN [Concomitant]
     Dosage: 15 MG, 3X/DAY
  11. FOSAMAX [Concomitant]
     Dosage: UNK, 1X/WEEK
  12. DILANTIN [Concomitant]
     Dosage: 300 MG, BED T.
  13. MULTI-VITAMIN [Concomitant]
     Dosage: 1 TAB(S), 1X/DAY
  14. ASCORBIC ACID [Concomitant]
     Dosage: 1 TAB(S), 1X/DAY
  15. CALCIUM CHLORIDE [Concomitant]
     Dosage: 1 TAB(S), 1X/DAY

REACTIONS (4)
  - BLISTER [None]
  - HEPATIC ENZYME INCREASED [None]
  - OPEN WOUND [None]
  - SKIN DISCOLOURATION [None]
